FAERS Safety Report 13304145 (Version 2)
Quarter: 2017Q1

REPORT INFORMATION
  Report Type: Spontaneous
  Country: JP (occurrence: JP)
  Receive Date: 20170308
  Receipt Date: 20170331
  Transmission Date: 20170428
  Serious: Yes (Hospitalization)
  Sender: FDA-Public Use
  Company Number: JP-ROCHE-1903023

PATIENT
  Age: 76 Year
  Sex: Female
  Weight: 49 kg

DRUGS (6)
  1. AVASTIN [Suspect]
     Active Substance: BEVACIZUMAB
     Indication: COLON CANCER
     Route: 041
     Dates: start: 20160227, end: 20170208
  2. EMEND [Concomitant]
     Active Substance: APREPITANT
     Dosage: 125 OR 80MG/DAY
     Route: 048
     Dates: start: 20161227, end: 20161229
  3. XELODA [Suspect]
     Active Substance: CAPECITABINE
     Indication: COLON CANCER
     Dosage: DOSAGE IS UNCERTAIN.
     Route: 048
     Dates: start: 20160127, end: 20170213
  4. ELPLAT [Concomitant]
     Active Substance: OXALIPLATIN
     Indication: COLON CANCER
     Route: 041
     Dates: start: 20161227, end: 20170208
  5. ACOFIDE [Concomitant]
     Active Substance: ACOTIAMIDE HYDROCHLORIDE
     Dosage: THE FRACTIONATION DOSE FREQUENCY IS UNCERTAIN.
     Route: 048
     Dates: start: 20170208
  6. RESTAMIN [Concomitant]
     Active Substance: DIPHENHYDRAMINE
     Dosage: SINGLE DOSE ADMINISTRATION
     Route: 048
     Dates: start: 20161227, end: 20161227

REACTIONS (3)
  - Pulmonary thrombosis [Recovering/Resolving]
  - Decreased appetite [Recovering/Resolving]
  - Diarrhoea [Recovered/Resolved]

NARRATIVE: CASE EVENT DATE: 20170208
